FAERS Safety Report 8606398-2 (Version None)
Quarter: 2012Q3

REPORT INFORMATION
  Report Type: 
  Country: None (occurrence: None)
  Receive Date: 20120820
  Receipt Date: 20120813
  Transmission Date: 20120928
  Serious: Yes (Death, Hospitalization)
  Sender: FDA-Public Use
  Company Number: DE-ROCHE-728776

PATIENT
  Sex: Female
  Weight: 71 kg

DRUGS (7)
  1. AVASTIN [Suspect]
     Dates: start: 20110110, end: 20120214
  2. AVASTIN [Suspect]
     Indication: COLORECTAL CANCER
     Route: 042
  3. IRINOTECAN HYDROCHLORIDE [Suspect]
     Indication: COLORECTAL CANCER
     Route: 042
  4. FLUOROURACIL [Suspect]
     Dates: start: 20110110, end: 20120214
  5. LEUCOVORIN CALCIUM [Suspect]
     Indication: COLORECTAL CANCER
     Route: 042
  6. LEUCOVORIN CALCIUM [Suspect]
     Dates: start: 20110110, end: 20120214
  7. FLUOROURACIL [Suspect]
     Indication: COLORECTAL CANCER
     Route: 042

REACTIONS (7)
  - DIARRHOEA [None]
  - HYPERKALAEMIA [None]
  - PLEURAL EFFUSION [None]
  - CARDIAC FAILURE [None]
  - PNEUMONIA [None]
  - DEATH [None]
  - DYSPNOEA [None]
